FAERS Safety Report 11400922 (Version 2)
Quarter: 2020Q2

REPORT INFORMATION
  Report Type: Spontaneous
  Country: US (occurrence: US)
  Receive Date: 20150820
  Receipt Date: 20200521
  Transmission Date: 20200713
  Serious: No
  Sender: FDA-Public Use
  Company Number: US-TEVA-586735USA

PATIENT
  Sex: Male
  Weight: 90.8 kg

DRUGS (1)
  1. CLARAVIS [Suspect]
     Active Substance: ISOTRETINOIN
     Route: 065
     Dates: start: 20150722

REACTIONS (5)
  - Vision blurred [Recovering/Resolving]
  - Headache [Recovering/Resolving]
  - Night blindness [Recovering/Resolving]
  - Eye pain [Recovering/Resolving]
  - Photosensitivity reaction [Recovering/Resolving]
